FAERS Safety Report 7820267 (Version 6)
Quarter: 2012Q4

REPORT INFORMATION
  Report Type: Report from Study
  Country: CA (occurrence: CA)
  Receive Date: 20110221
  Receipt Date: 20121129
  Transmission Date: 20130627
  Serious: Yes (Hospitalization)
  Sender: FDA-Public Use
  Company Number: CA-BRISTOL-MYERS SQUIBB COMPANY-14248470

PATIENT
  Age: 66 Year
  Sex: Female
  Weight: 89 kg

DRUGS (20)
  1. ORENCIA [Suspect]
     Indication: RHEUMATOID ARTHRITIS
     Dosage: 20Oc,9De08,6Ja,3Fe,31Ma9,1:26My,20Au,23Se,19Oc,16De9,10De10,25May11,14Sep11.inf:41
1C71233-Exp:Oc13
     Route: 042
     Dates: start: 20080626
  2. OXYCONTIN [Concomitant]
  3. PREDNISONE [Concomitant]
  4. AMITRIPTYLINE [Concomitant]
  5. RABEPRAZOLE [Concomitant]
  6. MULTIVITAMINS [Concomitant]
  7. FOLIC ACID [Concomitant]
  8. CENESTIN [Concomitant]
  9. ATIVAN [Concomitant]
  10. CALCIUM + VITAMIN D [Concomitant]
  11. ACTONEL [Concomitant]
  12. METFORMIN [Concomitant]
  13. VENTOLIN [Concomitant]
  14. ATROVENT [Concomitant]
  15. DENOSUMAB [Concomitant]
  16. METOPROLOL [Concomitant]
  17. HYDROMORPHONE [Concomitant]
  18. CYMBALTA [Concomitant]
  19. MULTIVITAMIN [Concomitant]
  20. CALTRATE [Concomitant]

REACTIONS (14)
  - Sepsis [Unknown]
  - Insomnia [Unknown]
  - Fatigue [Unknown]
  - Pain [Unknown]
  - Asthenia [Unknown]
  - Nausea [Unknown]
  - Rheumatoid arthritis [Unknown]
  - Nasopharyngitis [Unknown]
  - Malaise [Unknown]
  - Heart rate increased [Unknown]
  - Pyrexia [Unknown]
  - Dyspepsia [Unknown]
  - Disorientation [Unknown]
  - Cough [Not Recovered/Not Resolved]
